FAERS Safety Report 17505224 (Version 1)
Quarter: 2020Q1

REPORT INFORMATION
  Report Type: Spontaneous
  Country: US (occurrence: US)
  Receive Date: 20200306
  Receipt Date: 20200306
  Transmission Date: 20200409
  Serious: Yes (Hospitalization)
  Sender: FDA-Public Use
  Company Number: US-TEVA-2020-US-1193647

PATIENT
  Age: 55 Year
  Sex: Female

DRUGS (1)
  1. PHENTERMINE. [Suspect]
     Active Substance: PHENTERMINE
     Dosage: 37.5 MILLIGRAM DAILY; SHE WAS USING A FAMILY MEMBER^S WEIGHT LOSS MEDICATION PHENTERMINE FOR SEVERAL
     Route: 065

REACTIONS (4)
  - Acute kidney injury [Recovered/Resolved]
  - Intestinal ischaemia [Recovered/Resolved]
  - Pseudomembranous colitis [Recovered/Resolved]
  - Contraindicated product administered [Unknown]
